FAERS Safety Report 20874223 (Version 2)
Quarter: 2022Q2

REPORT INFORMATION
  Report Type: Spontaneous
  Country: CN (occurrence: CN)
  Receive Date: 20220525
  Receipt Date: 20220527
  Transmission Date: 20220721
  Serious: Yes (Other)
  Sender: FDA-Public Use
  Company Number: CN-PFIZER INC-202200752892

PATIENT
  Age: 58 Year
  Sex: Male
  Weight: 65 kg

DRUGS (3)
  1. AMLODIPINE BESYLATE [Suspect]
     Active Substance: AMLODIPINE BESYLATE
     Indication: Therapeutic procedure
  2. OXCARBAZEPINE [Suspect]
     Active Substance: OXCARBAZEPINE
     Indication: Epilepsy
  3. CITICOLINE [Suspect]
     Active Substance: CITICOLINE
     Indication: Therapeutic procedure

REACTIONS (8)
  - Epilepsy [Unknown]
  - Generalised tonic-clonic seizure [Unknown]
  - Pneumonia [Unknown]
  - Pyrexia [Unknown]
  - Urinary tract infection [Unknown]
  - Depressed mood [Unknown]
  - Productive cough [Unknown]
  - Neutrophil count decreased [Unknown]

NARRATIVE: CASE EVENT DATE: 20220404
